FAERS Safety Report 6231282-1 (Version None)
Quarter: 2009Q2

REPORT INFORMATION
  Report Type: 
  Country: None (occurrence: None)
  Receive Date: 20090616
  Receipt Date: 20090604
  Transmission Date: 20091009
  Serious: Yes (Hospitalization, Other)
  Sender: FDA-Public Use
  Company Number: CH-AVENTIS-200915856GDDC

PATIENT
  Age: 58 Year
  Sex: Female

DRUGS (4)
  1. ARAVA [Suspect]
     Indication: POLYARTHRITIS
     Route: 048
     Dates: start: 20090313, end: 20090313
  2. INFLAMAC [Concomitant]
     Route: 048
  3. CO-APROVEL [Concomitant]
     Dosage: DOSE QUANTITY: 1
     Route: 048
  4. DILATREND [Concomitant]
     Route: 048

REACTIONS (4)
  - HYPERTENSION [None]
  - MALAISE [None]
  - NAUSEA [None]
  - OFF LABEL USE [None]
